FAERS Safety Report 21542486 (Version 1)
Quarter: 2022Q4

REPORT INFORMATION
  Report Type: Spontaneous
  Country: US (occurrence: US)
  Receive Date: 20221102
  Receipt Date: 20221102
  Transmission Date: 20230112
  Serious: Yes (Other)
  Sender: FDA-Public Use
  Company Number: US-009507513-2210USA010783

PATIENT
  Age: 80 Year
  Sex: Female

DRUGS (1)
  1. KEYTRUDA [Suspect]
     Active Substance: PEMBROLIZUMAB
     Indication: Skin cancer
     Route: 042

REACTIONS (4)
  - Lymphadenectomy [Unknown]
  - Tooth loss [Not Recovered/Not Resolved]
  - Amnesia [Unknown]
  - Skin lesion removal [Unknown]
